FAERS Safety Report 25950592 (Version 1)
Quarter: 2025Q4

REPORT INFORMATION
  Report Type: Spontaneous
  Country: US (occurrence: US)
  Receive Date: 20251023
  Receipt Date: 20251023
  Transmission Date: 20260117
  Serious: No
  Sender: CATALENT PHARMA SOLUTIONS
  Company Number: US_RAP_Catalent_338_421202514052_1

PATIENT
  Age: 73 Year
  Sex: Female

DRUGS (1)
  1. CETIRIZINE [Suspect]
     Active Substance: CETIRIZINE HYDROCHLORIDE
     Indication: Seasonal allergy
     Dosage: 1 GEL CAPSULE ONCE DAILY
     Route: 065
     Dates: start: 20250303, end: 20250317

REACTIONS (1)
  - Pruritus [Unknown]

NARRATIVE: CASE EVENT DATE: 20250317
